FAERS Safety Report 4324729-9 (Version None)
Quarter: 2004Q1

REPORT INFORMATION
  Report Type: 
  Country: None (occurrence: None)
  Receive Date: 20040323
  Receipt Date: 20040219
  Transmission Date: 20041129
  Serious: Yes (Other)
  Sender: FDA-Public Use
  Company Number: 30018803-R04A132-1

PATIENT
  Age: 60 Year
  Sex: Male
  Weight: 55 kg

DRUGS (2)
  1. DIANEAL PD-2 W/ DEXTROSE 1.5% [Suspect]
     Indication: PERITONEAL DIALYSIS
     Dosage: 1.5% SOLUTIION, INTRAPERITONEAL
     Route: 033
     Dates: start: 19960101
  2. DIANEAL PD-2, 4.25% TWIN-BAG [Concomitant]

REACTIONS (2)
  - ABDOMINAL PAIN [None]
  - PROCEDURAL COMPLICATION [None]
